FAERS Safety Report 11229469 (Version 1)
Quarter: 2015Q2

REPORT INFORMATION
  Report Type: Other
  Country: DE (occurrence: DE)
  Receive Date: 20150630
  Receipt Date: 20150630
  Transmission Date: 20150821
  Serious: Yes (Hospitalization)
  Sender: FDA-Public Use
  Company Number: DE-MYLANLABS-2015M1020623

PATIENT

DRUGS (4)
  1. CANDESARTAN [Suspect]
     Active Substance: CANDESARTAN
     Dosage: 4 MG, BID (DAILY DOSE: 8 MG MILLGRAM(S) EVERY DAYS)
  2. TELMISARTAN. [Suspect]
     Active Substance: TELMISARTAN
     Dosage: 40 MG, QD (DAILY DOSE: 40 MG MILLGRAM(S) EVERY DAYS)
  3. VALSARTAN. [Suspect]
     Active Substance: VALSARTAN
     Dosage: 80 MG, BID (DAILY DOSE: 160 MG MILLGRAM(S) EVERY DAYS)
  4. LOSARTAN [Suspect]
     Active Substance: LOSARTAN
     Dosage: 25 MG, BID (DAILY DOSE: 50 MG MILLGRAM(S) EVERY DAYS)

REACTIONS (3)
  - Faecal incontinence [Recovering/Resolving]
  - Abdominal pain [Recovering/Resolving]
  - Faeces soft [Recovering/Resolving]
